FAERS Safety Report 19811623 (Version 1)
Quarter: 2021Q3

REPORT INFORMATION
  Report Type: Spontaneous
  Country: BR (occurrence: BR)
  Receive Date: 20210909
  Receipt Date: 20210909
  Transmission Date: 20211014
  Serious: Yes (Hospitalization, Other)
  Sender: FDA-Public Use
  Company Number: BR-ACCORD-237836

PATIENT
  Age: 77 Year
  Sex: Female

DRUGS (2)
  1. ZOLEDRONIC ACID [Suspect]
     Active Substance: ZOLEDRONIC ACID
     Indication: OSTEOPOROSIS
     Dosage: 1 INFUSION OF ZOLEDRONIC ACID 5MG/100ML SOLUTION EVERY 2 YEARS, TOTALING 2 DOSES
  2. RISEDRONATE SODIUM/RISEDRONIC ACID [Suspect]
     Active Substance: RISEDRONATE SODIUM
     Indication: OSTEOPOROSIS
     Dosage: LONG?TERM USE
     Route: 048

REACTIONS (6)
  - Osteosclerosis [Recovered/Resolved]
  - Purulent discharge [Recovered/Resolved]
  - Pathological fracture [Unknown]
  - Fistula discharge [Recovered/Resolved]
  - Dental restoration failure [Recovered/Resolved]
  - Osteonecrosis of jaw [Recovered/Resolved]
